FAERS Safety Report 4840784-1 (Version None)
Quarter: 2005Q4

REPORT INFORMATION
  Report Type: 
  Country: None (occurrence: None)
  Receive Date: 20051130
  Receipt Date: 20041001
  Transmission Date: 20060501
  Serious: No
  Sender: FDA-Public Use
  Company Number: US-BRISTOL-MYERS SQUIBB COMPANY-12719415

PATIENT
  Age: 50 Year
  Sex: Female
  Weight: 66 kg

DRUGS (3)
  1. AVALIDE [Suspect]
     Indication: HYPERTENSION
     Route: 048
     Dates: start: 20040701, end: 20040910
  2. SYNTHROID [Concomitant]
  3. PROPRANOLOL [Concomitant]

REACTIONS (2)
  - DIARRHOEA [None]
  - DIZZINESS [None]
